FAERS Safety Report 9046887 (Version 1)
Quarter: 2013Q1

REPORT INFORMATION
  Report Type: Spontaneous
  Country: US (occurrence: US)
  Receive Date: 20130204
  Receipt Date: 20130204
  Transmission Date: 20140127
  Serious: Yes (Other)
  Sender: FDA-Public Use
  Company Number: US-TEVA-371196USA

PATIENT
  Sex: Female

DRUGS (9)
  1. TOPIRAMATE [Suspect]
  2. CLOZAPINE [Concomitant]
     Dosage: 300 MILLIGRAM DAILY;
  3. METFORMIN [Concomitant]
     Dosage: 500 MILLIGRAM DAILY;
  4. MECLAZINE [Concomitant]
     Dosage: 75 MILLIGRAM DAILY;
     Route: 048
  5. AMLODIPINE [Concomitant]
     Dosage: 5 MILLIGRAM DAILY;
  6. LIPITOR [Concomitant]
     Dosage: 40 MILLIGRAM DAILY;
  7. ASPIRIN [Concomitant]
     Dosage: 81 MILLIGRAM DAILY;
     Route: 048
  8. LASIX [Concomitant]
     Dosage: DAILY
     Route: 048
  9. TEGRETAL [Concomitant]
     Dosage: DAILY
     Route: 048

REACTIONS (4)
  - Retinopathy proliferative [Recovered/Resolved]
  - Vision blurred [Recovered/Resolved]
  - Dry eye [Unknown]
  - Eye irritation [Recovered/Resolved]
